FAERS Safety Report 13666379 (Version 1)
Quarter: 2017Q2

REPORT INFORMATION
  Report Type: Spontaneous
  Country: US (occurrence: US)
  Receive Date: 20170619
  Receipt Date: 20170619
  Transmission Date: 20170830
  Serious: No
  Sender: FDA-Public Use
  Company Number: US-ROCHE-1329349

PATIENT
  Sex: Male

DRUGS (6)
  1. XELODA [Suspect]
     Active Substance: CAPECITABINE
     Indication: COLON CANCER
     Dosage: 14 DAYS ON, 7 DAYS OFF
     Route: 048
     Dates: start: 20130918
  2. XELODA [Suspect]
     Active Substance: CAPECITABINE
     Indication: METASTASES TO NERVOUS SYSTEM
  3. GABAPENTIN. [Concomitant]
     Active Substance: GABAPENTIN
     Route: 065
  4. CLONIDINE. [Concomitant]
     Active Substance: CLONIDINE
  5. MEGESTROL [Concomitant]
     Active Substance: MEGESTROL
  6. LISINOPRIL. [Concomitant]
     Active Substance: LISINOPRIL
     Route: 065

REACTIONS (1)
  - Hypoaesthesia [Not Recovered/Not Resolved]
